FAERS Safety Report 11484662 (Version 1)
Quarter: 2015Q3

REPORT INFORMATION
  Report Type: Spontaneous
  Country: US (occurrence: US)
  Receive Date: 20150903
  Receipt Date: 20150903
  Transmission Date: 20151125
  Serious: No
  Sender: FDA-Public Use
  Company Number: US-ELI_LILLY_AND_COMPANY-US201207002217

PATIENT
  Age: 62 Year
  Sex: Female

DRUGS (1)
  1. CYMBALTA [Suspect]
     Active Substance: DULOXETINE HYDROCHLORIDE
     Indication: BACK PAIN
     Dosage: 60 MG, QD
     Route: 065

REACTIONS (7)
  - Somnolence [Unknown]
  - Intentional product misuse [Unknown]
  - Depressed mood [Unknown]
  - Insomnia [Unknown]
  - Nervousness [Unknown]
  - Anxiety [Unknown]
  - Drug ineffective [Unknown]
